FAERS Safety Report 6059144-3 (Version None)
Quarter: 2009Q1

REPORT INFORMATION
  Report Type: 
  Country: None (occurrence: None)
  Receive Date: 20090130
  Receipt Date: 20090122
  Transmission Date: 20090719
  Serious: Yes (Other)
  Sender: FDA-Public Use
  Company Number: SE-ABBOTT-09P-150-0499049-00

PATIENT
  Age: 39 Year
  Sex: Female

DRUGS (5)
  1. HUMIRA [Suspect]
     Indication: COLITIS ULCERATIVE
     Dosage: DOSE:NOT REPORTED
     Route: 058
     Dates: start: 20080101
  2. HUMIRA [Suspect]
     Route: 058
     Dates: start: 20080601, end: 20080801
  3. HUMIRA [Suspect]
     Route: 058
     Dates: start: 20080902, end: 20081120
  4. PRIMPERAN TAB [Concomitant]
     Indication: DRUG USE FOR UNKNOWN INDICATION
  5. COLAZID [Concomitant]
     Indication: DRUG USE FOR UNKNOWN INDICATION

REACTIONS (5)
  - COLECTOMY [None]
  - HYPERTHYROIDISM [None]
  - IRRITABILITY [None]
  - PALPITATIONS [None]
  - PYREXIA [None]
